FAERS Safety Report 9587804 (Version 1)
Quarter: 2013Q4

REPORT INFORMATION
  Report Type: Report from Study
  Country: US (occurrence: US)
  Receive Date: 20131003
  Receipt Date: 20131003
  Transmission Date: 20140711
  Serious: Yes (Other)
  Sender: FDA-Public Use
  Company Number: US-MILLENNIUM PHARMACEUTICALS, INC.-2013MPI000470

PATIENT
  Sex: 0

DRUGS (11)
  1. VELCADE [Suspect]
     Indication: WALDENSTROM^S MACROGLOBULINAEMIA
     Dosage: 1.6 MG/M2, ON DAYS 1, 8, 15 AND 22
     Route: 042
  2. RITUXIMAB [Suspect]
     Indication: WALDENSTROM^S MACROGLOBULINAEMIA
     Dosage: 375 MG/M2, ON DAYS 8 AND 22
     Route: 042
  3. RITUXIMAB [Suspect]
     Dosage: 375 MG/M2, ON DAY 1
  4. RITUXIMAB [Suspect]
     Dosage: 375 MG/M2, QWK FOR 4 WEEKS
     Route: 042
  5. CYCLOPHOSPHAMIDE [Suspect]
     Indication: WALDENSTROM^S MACROGLOBULINAEMIA
     Dosage: 350 MG/M2, BID FOR 8 DOSES
     Route: 042
  6. CYCLOPHOSPHAMIDE [Suspect]
     Dosage: 60 MG/M2, BID FOR 5 DAYS
     Route: 048
  7. VINCRISTINE [Suspect]
     Indication: WALDENSTROM^S MACROGLOBULINAEMIA
     Dosage: 0.4 MG, QD
  8. DOXORUBICIN [Suspect]
     Indication: WALDENSTROM^S MACROGLOBULINAEMIA
     Dosage: 9 MG/M2, ON DAYS 1-4
     Route: 051
  9. DEXAMETHASONE [Suspect]
     Indication: WALDENSTROM^S MACROGLOBULINAEMIA
     Dosage: 20 MG/M2, ON DAYS 1-4, 9-12, 17-20
  10. CLADRIBINE [Suspect]
     Indication: WALDENSTROM^S MACROGLOBULINAEMIA
     Dosage: 3 MG/M2, FOR 5 DAYS
     Route: 042
  11. VALACYCLOVIR HYDROCHLORIDE [Concomitant]
     Indication: PROPHYLAXIS

REACTIONS (1)
  - Basal cell carcinoma [Unknown]
